FAERS Safety Report 7028165-6 (Version None)
Quarter: 2010Q4

REPORT INFORMATION
  Report Type: 
  Country: None (occurrence: None)
  Receive Date: 20101005
  Receipt Date: 20100929
  Transmission Date: 20110411
  Serious: Yes (Death)
  Sender: FDA-Public Use
  Company Number: US-BRACCO-004652

PATIENT
  Sex: Female

DRUGS (4)
  1. CHOLETEC [Suspect]
     Indication: HEPATOBILIARY SCAN
     Dosage: 0.47 ML CONTAINING 7 MCI
     Route: 042
     Dates: start: 20100621, end: 20100621
  2. CHOLETEC [Suspect]
     Indication: NAUSEA
     Dosage: 0.47 ML CONTAINING 7 MCI
     Route: 042
     Dates: start: 20100621, end: 20100621
  3. CHOLETEC [Suspect]
     Indication: ULTRASOUND ABDOMEN
     Dosage: 0.47 ML CONTAINING 7 MCI
     Route: 042
     Dates: start: 20100621, end: 20100621
  4. CHOLETEC [Suspect]
     Indication: CHOLECYSTITIS ACUTE
     Dosage: 0.47 ML CONTAINING 7 MCI
     Route: 042
     Dates: start: 20100621, end: 20100621

REACTIONS (4)
  - CARDIAC ARREST [None]
  - HYPERKALAEMIA [None]
  - PAIN [None]
  - VENTRICULAR TACHYCARDIA [None]
